FAERS Safety Report 22655296 (Version 2)
Quarter: 2025Q3

REPORT INFORMATION
  Report Type: Other
  Country: EU (occurrence: EU)
  Receive Date: 20230629
  Receipt Date: 20250708
  Transmission Date: 20251021
  Serious: Yes (Other)
  Sender: GLENMARK
  Company Number: EU-GLENMARK PHARMACEUTICALS-2023GMK082824

PATIENT
  Age: 51 Year
  Sex: Male
  Weight: 97 kg

DRUGS (2)
  1. RYALTRIS [Suspect]
     Active Substance: MOMETASONE FUROATE MONOHYDRATE\OLOPATADINE HYDROCHLORIDE
     Indication: Product used for unknown indication
     Route: 065
  2. RYALTRIS [Suspect]
     Active Substance: MOMETASONE FUROATE MONOHYDRATE\OLOPATADINE HYDROCHLORIDE

REACTIONS (1)
  - Nasal crusting [Recovering/Resolving]

NARRATIVE: CASE EVENT DATE: 20230502
